FAERS Safety Report 7562167-6 (Version None)
Quarter: 2011Q2

REPORT INFORMATION
  Report Type: 
  Country: None (occurrence: None)
  Receive Date: 20110614
  Receipt Date: 20110523
  Transmission Date: 20111010
  Serious: Yes (Hospitalization, Congenital Anomaly, Other)
  Sender: FDA-Public Use
  Company Number: 2010003613

PATIENT
  Age: 69 Year
  Sex: Male
  Weight: 52 kg

DRUGS (17)
  1. ERLOTINIB HYDROCHLORIDE [Suspect]
     Indication: HEPATIC NEOPLASM MALIGNANT
     Dosage: 100 MG, UID/QD, ORAL 200 MG, UID/QD, ORAL
     Route: 048
     Dates: start: 20100913, end: 20101104
  2. ERLOTINIB HYDROCHLORIDE [Suspect]
     Indication: HEPATIC NEOPLASM MALIGNANT
     Dosage: 100 MG, UID/QD, ORAL 200 MG, UID/QD, ORAL
     Route: 048
     Dates: start: 20100809, end: 20100823
  3. PYRAZINAMIDE [Concomitant]
  4. SPIRONOLACTONE [Concomitant]
  5. MOXIFLOXACIN HCL [Concomitant]
  6. TRAMADOL HCL [Concomitant]
  7. ACETAMINOPHEN [Concomitant]
  8. FORTISIP (FORTISIP) [Concomitant]
  9. ANTIEMETICS [Concomitant]
  10. ETHAMBUTOL (ETHAMBUTOL) [Concomitant]
  11. SORAFENIB (SORAFENIB) TABLET [Suspect]
     Indication: HEPATIC NEOPLASM MALIGNANT
     Dosage: 400 MG, UID/QD, ORAL
     Route: 048
     Dates: start: 20100913, end: 20101104
  12. SORAFENIB (SORAFENIB) TABLET [Suspect]
     Indication: HEPATIC NEOPLASM MALIGNANT
     Dosage: 400 MG, UID/QD, ORAL
     Route: 048
     Dates: start: 20100809, end: 20100823
  13. FUROSEMIDE [Concomitant]
  14. COTRIM [Concomitant]
  15. ANALGESICS (ANALGESICS) [Concomitant]
  16. NADOLOL [Concomitant]
  17. METOCLOPRAMIDE [Concomitant]

REACTIONS (7)
  - HYPONATRAEMIA [None]
  - GENERAL PHYSICAL HEALTH DETERIORATION [None]
  - PERITONEAL TUBERCULOSIS [None]
  - ASCITES [None]
  - HAEMATEMESIS [None]
  - RECTAL HAEMORRHAGE [None]
  - DEHYDRATION [None]
